FAERS Safety Report 9099921 (Version 2)
Quarter: 2013Q1

REPORT INFORMATION
  Report Type: Spontaneous
  Country: DE (occurrence: ES)
  Receive Date: 20130214
  Receipt Date: 20130305
  Transmission Date: 20140127
  Serious: Yes (Hospitalization)
  Sender: FDA-Public Use
  Company Number: ES-FRI-1000042637

PATIENT
  Age: 70 Year
  Sex: Male
  Weight: 65 kg

DRUGS (11)
  1. ROFLUMILAST [Suspect]
     Indication: CHRONIC OBSTRUCTIVE PULMONARY DISEASE
     Dosage: 500 MCG
     Route: 048
     Dates: start: 201203, end: 2012
  2. ROFLUMILAST [Suspect]
     Dosage: 500 MCG
     Route: 048
     Dates: start: 201211, end: 2012
  3. COLISTIN [Concomitant]
  4. FLUTICASONE W/SALMETEROL [Concomitant]
  5. THEODUR [Concomitant]
     Dosage: 1 DF
  6. THEODUR [Concomitant]
     Dosage: 1 DF
  7. SALBUTAMOL [Concomitant]
  8. IPRATROPIUM [Concomitant]
  9. TIOTROPIUM [Concomitant]
  10. LORATADINE [Concomitant]
     Route: 045
  11. OXYGEN [Concomitant]
     Dosage: AT NIGHT + 2 HRS DURING DAY

REACTIONS (5)
  - Chronic obstructive pulmonary disease [Unknown]
  - Chills [Recovered/Resolved]
  - Dizziness [Recovered/Resolved]
  - Diarrhoea [Recovered/Resolved]
  - Weight decreased [Recovered/Resolved]
